FAERS Safety Report 21146877 (Version 1)
Quarter: 2022Q3

REPORT INFORMATION
  Report Type: Spontaneous
  Country: US (occurrence: None)
  Receive Date: 20220728
  Receipt Date: 20220728
  Transmission Date: 20221027
  Serious: Yes (Other)
  Sender: FDA-Public Use
  Company Number: None

PATIENT
  Age: 32 Year
  Sex: Female
  Weight: 117 kg

DRUGS (5)
  1. PAXLOVID [Suspect]
     Active Substance: NIRMATRELVIR\RITONAVIR
     Indication: COVID-19
     Dates: start: 20220617, end: 20220621
  2. LAMOTRIGINE [Concomitant]
  3. PRAZOSIN [Concomitant]
  4. HYDROXYZINE [Concomitant]
  5. SPIRONOLACTONE [Concomitant]
     Active Substance: SPIRONOLACTONE

REACTIONS (1)
  - COVID-19 [None]

NARRATIVE: CASE EVENT DATE: 20220627
